FAERS Safety Report 19350261 (Version 1)
Quarter: 2021Q2

REPORT INFORMATION
  Report Type: Spontaneous
  Country: US (occurrence: US)
  Receive Date: 20210601
  Receipt Date: 20210601
  Transmission Date: 20210717
  Serious: Yes (Hospitalization)
  Sender: FDA-Public Use
  Company Number: None

PATIENT
  Age: 18 Year
  Sex: Male

DRUGS (1)
  1. STELARA [Suspect]
     Active Substance: USTEKINUMAB
     Indication: PSORIASIS
     Dosage: 1 SYR :Q10WK  SQ?
     Route: 058
     Dates: start: 20200313

REACTIONS (3)
  - Suicide attempt [None]
  - Rhinalgia [None]
  - Ear pain [None]

NARRATIVE: CASE EVENT DATE: 20210522
